FAERS Safety Report 10167237 (Version 4)
Quarter: 2014Q3

REPORT INFORMATION
  Report Type: Spontaneous
  Country: US (occurrence: None)
  Receive Date: 20140508
  Receipt Date: 20140724
  Transmission Date: 20150326
  Serious: Yes (Other)
  Sender: FDA-Public Use
  Company Number: 2014SA055419

PATIENT
  Age: 96 Year
  Sex: Male

DRUGS (2)
  1. CAPZASIN HP ARTHRITIS PAIN RELIEF [Suspect]
     Active Substance: CAPSAICIN
     Indication: HERPES ZOSTER
     Dosage: 1 DOSAGE FORM
     Dates: start: 201210
  2. LYRICA [Concomitant]
     Active Substance: PREGABALIN

REACTIONS (6)
  - Drug ineffective [None]
  - Joint injury [None]
  - Loss of consciousness [None]
  - Fall [None]
  - Product quality issue [None]
  - Malaise [None]
